FAERS Safety Report 8760558 (Version 1)
Quarter: 2012Q4

REPORT INFORMATION
  Report Type: 
  Country: US (occurrence: None)
  Receive Date: 20120829
  Receipt Date: 20120829
  Transmission Date: 20130627
  Serious: Yes (Hospitalization)
  Sender: FDA-Public Use
  Company Number: None

PATIENT
  Sex: Male
  Weight: 29 kg

DRUGS (4)
  1. MERCAPTOPURINE [Suspect]
     Dates: end: 20120824
  2. METHOTREXATE [Suspect]
     Dates: end: 20120821
  3. PREDNISONE [Suspect]
     Dates: end: 20120804
  4. VINCRISTINE SULFATE [Suspect]
     Dates: end: 20120731

REACTIONS (3)
  - Mucosal inflammation [None]
  - Febrile neutropenia [None]
  - Decreased appetite [None]
